FAERS Safety Report 8255177-7 (Version None)
Quarter: 2012Q1

REPORT INFORMATION
  Report Type: 
  Country: None (occurrence: None)
  Receive Date: 20120322
  Receipt Date: 20111219
  Transmission Date: 20120608
  Serious: Yes (Death, Hospitalization)
  Sender: FDA-Public Use
  Company Number: UTC-015455

PATIENT
  Age: 70 Year
  Sex: Female

DRUGS (3)
  1. REVATIO [Concomitant]
  2. TYVASO [Suspect]
     Indication: PULMONARY ARTERIAL HYPERTENSION
     Dosage: (4 IN 1 D), INHALATION
     Route: 055
     Dates: start: 20111115
  3. LATAIRIS (AMBRISENTAN) [Concomitant]

REACTIONS (2)
  - FLUID RETENTION [None]
  - MYOCARDIAL INFARCTION [None]
